FAERS Safety Report 6207846-8 (Version None)
Quarter: 2009Q2

REPORT INFORMATION
  Report Type: 
  Country: None (occurrence: None)
  Receive Date: 20090522
  Receipt Date: 20090507
  Transmission Date: 20091009
  Serious: Yes (Hospitalization, Other)
  Sender: FDA-Public Use
  Company Number: 2009S1008801

PATIENT
  Age: 1 Day
  Sex: Male
  Weight: 1 kg

DRUGS (1)
  1. FLUOXETINE HCL [Suspect]
     Dosage: TRANSPLACENTAL
     Route: 064

REACTIONS (5)
  - AGITATION NEONATAL [None]
  - DRUG WITHDRAWAL SYNDROME NEONATAL [None]
  - IRRITABILITY [None]
  - MATERNAL DRUGS AFFECTING FOETUS [None]
  - PREMATURE BABY [None]
